FAERS Safety Report 6804503-1 (Version None)
Quarter: 2010Q2

REPORT INFORMATION
  Report Type: 
  Country: None (occurrence: None)
  Receive Date: 20100628
  Receipt Date: 20070328
  Transmission Date: 20101027
  Serious: Yes (Other)
  Sender: FDA-Public Use
  Company Number: US-PFIZER INC-2007025501

PATIENT
  Sex: Male
  Weight: 81.6 kg

DRUGS (6)
  1. SUTENT [Suspect]
     Indication: RENAL CELL CARCINOMA
     Dosage: EVERY DAY
     Dates: start: 20060901
  2. LIPITOR [Concomitant]
  3. ACCUPRIL [Concomitant]
  4. ATENOLOL [Concomitant]
  5. AVASTIN [Concomitant]
  6. ARANESP [Concomitant]

REACTIONS (4)
  - ANAEMIA [None]
  - DEEP VEIN THROMBOSIS [None]
  - HAEMATOCRIT DECREASED [None]
  - PLATELET COUNT DECREASED [None]
